FAERS Safety Report 5839719-4 (Version None)
Quarter: 2008Q3

REPORT INFORMATION
  Report Type: 
  Country: None (occurrence: None)
  Receive Date: 20080811
  Receipt Date: 20080710
  Transmission Date: 20090109
  Serious: No
  Sender: FDA-Public Use
  Company Number: US-BAYER-200828657NA

PATIENT
  Age: 22 Year
  Sex: Male
  Weight: 111 kg

DRUGS (1)
  1. AVELOX [Suspect]
     Indication: EAR PAIN
     Dates: start: 20080709

REACTIONS (2)
  - PRURITUS [None]
  - URTICARIA [None]
